FAERS Safety Report 10035878 (Version 1)
Quarter: 2014Q1

REPORT INFORMATION
  Report Type: Spontaneous
  Country: US (occurrence: US)
  Receive Date: 20140325
  Receipt Date: 20140325
  Transmission Date: 20141002
  Serious: Yes (Other)
  Sender: FDA-Public Use
  Company Number: US-BAYER-2014-040830

PATIENT
  Age: 62 Year
  Sex: Female
  Weight: 71 kg

DRUGS (7)
  1. ALEVE TABLET [Suspect]
     Indication: ARTHRITIS
     Dosage: 2 DF, QD
     Route: 048
     Dates: start: 201402, end: 20140313
  2. JANUMET [Concomitant]
  3. BUPROPION [Concomitant]
  4. OMEPRAZOLE [Concomitant]
  5. SIMVASTATIN [Concomitant]
  6. LISINOPRIL [Concomitant]
  7. ADVAIR [Concomitant]

REACTIONS (9)
  - Aphagia [Recovered/Resolved]
  - Swelling face [Recovered/Resolved]
  - Skin warm [Recovered/Resolved]
  - Ocular hyperaemia [Recovered/Resolved]
  - Local swelling [Recovered/Resolved]
  - Paraesthesia [Recovered/Resolved]
  - Swollen tongue [Recovered/Resolved]
  - Paraesthesia mucosal [Recovered/Resolved]
  - Incorrect drug administration duration [None]
